FAERS Safety Report 6071499-2 (Version None)
Quarter: 2009Q1

REPORT INFORMATION
  Report Type: 
  Country: None (occurrence: None)
  Receive Date: 20090209
  Receipt Date: 20090209
  Transmission Date: 20090719
  Serious: Yes (Death)
  Sender: FDA-Public Use
  Company Number: None

PATIENT
  Age: 67 Year
  Sex: Male
  Weight: 86.1834 kg

DRUGS (1)
  1. CRESTOR [Suspect]
     Indication: BLOOD CHOLESTEROL INCREASED
     Dosage: ONCE PO Q D ONCE PO Q D PO ~SPRING 2008 - OCT 2008
     Route: 048
     Dates: start: 20080101, end: 20081001

REACTIONS (1)
  - PANCREATITIS [None]
